FAERS Safety Report 25041088 (Version 1)
Quarter: 2025Q1

REPORT INFORMATION
  Report Type: Spontaneous
  Country: US (occurrence: None)
  Receive Date: 20250305
  Receipt Date: 20250305
  Transmission Date: 20250409
  Serious: Yes (Life-Threatening, Hospitalization, Other)
  Sender: FDA-CTU
  Company Number: None

PATIENT
  Age: 27 Year
  Sex: Female
  Weight: 102.15 kg

DRUGS (10)
  1. NUVARING [Suspect]
     Active Substance: ETHINYL ESTRADIOL\ETONOGESTREL
     Indication: Contraception
     Dates: start: 20240307, end: 20240831
  2. NUVARING [Suspect]
     Active Substance: ETHINYL ESTRADIOL\ETONOGESTREL
     Indication: Polycystic ovarian syndrome
  3. NUVARING [Suspect]
     Active Substance: ETHINYL ESTRADIOL\ETONOGESTREL
     Indication: Heavy menstrual bleeding
  4. NUVARING [Suspect]
     Active Substance: ETHINYL ESTRADIOL\ETONOGESTREL
     Indication: Anaemia
  5. ELIQUIS [Concomitant]
     Active Substance: APIXABAN
  6. PHENTERMINE [Concomitant]
     Active Substance: PHENTERMINE
  7. UNSPECIFIED INGREDIENT [Concomitant]
     Active Substance: UNSPECIFIED INGREDIENT
  8. TYLENOL [Concomitant]
     Active Substance: ACETAMINOPHEN
  9. medical marijuana THC/CBD capsules [Concomitant]
  10. ALLEGRA [Concomitant]
     Active Substance: FEXOFENADINE HYDROCHLORIDE

REACTIONS (6)
  - Ligament sprain [None]
  - Dyspnoea [None]
  - Palpitations [None]
  - Deep vein thrombosis [None]
  - Pulmonary embolism [None]
  - Complication associated with device [None]

NARRATIVE: CASE EVENT DATE: 20240829
